FAERS Safety Report 6140007-X (Version None)
Quarter: 2009Q1

REPORT INFORMATION
  Report Type: 
  Country: None (occurrence: None)
  Receive Date: 20090331
  Receipt Date: 20090331
  Transmission Date: 20090719
  Serious: Yes (Other)
  Sender: FDA-Public Use
  Company Number: None

PATIENT
  Age: 41 Year
  Sex: Male
  Weight: 85.7298 kg

DRUGS (2)
  1. DOXYCYCLINE [Suspect]
     Indication: ACNE
     Dosage: 1 TWICE DAILY PO
     Route: 048
     Dates: start: 20090313, end: 20090317
  2. DOXYCYCLINE [Suspect]
     Indication: ROSACEA
     Dosage: 1 TWICE DAILY PO
     Route: 048
     Dates: start: 20090313, end: 20090317

REACTIONS (6)
  - ABDOMINAL PAIN UPPER [None]
  - ANXIETY [None]
  - BACK PAIN [None]
  - CONFUSIONAL STATE [None]
  - HEART RATE INCREASED [None]
  - PANIC ATTACK [None]
